FAERS Safety Report 10186248 (Version 2)
Quarter: 2014Q2

REPORT INFORMATION
  Report Type: Spontaneous
  Country: FR (occurrence: FR)
  Receive Date: 20140521
  Receipt Date: 20140609
  Transmission Date: 20141212
  Serious: Yes (Hospitalization, Other)
  Sender: FDA-Public Use
  Company Number: FR-GLAXOSMITHKLINE-B0995424A

PATIENT
  Age: 74 Year
  Sex: Male

DRUGS (2)
  1. LAMOTRIGINE [Suspect]
     Indication: EPILEPSY
     Route: 065
  2. SODIUM VALPROATE [Suspect]
     Indication: EPILEPSY
     Route: 065

REACTIONS (18)
  - General physical health deterioration [Recovered/Resolved]
  - Pyrexia [Unknown]
  - Confusional state [Unknown]
  - Disorientation [Unknown]
  - Nuchal rigidity [Unknown]
  - Rash morbilliform [Unknown]
  - Inflammation [Unknown]
  - Thrombocytopenia [Unknown]
  - Meningitis aseptic [Unknown]
  - Renal failure [Unknown]
  - Hepatitis cholestatic [Unknown]
  - Rhabdomyolysis [Unknown]
  - Serum ferritin increased [Unknown]
  - Disseminated intravascular coagulation [Unknown]
  - Fibrinolysis [Unknown]
  - Polyarthritis [Unknown]
  - Arthritis [Unknown]
  - Toxic skin eruption [Unknown]
